FAERS Safety Report 15347365 (Version 2)
Quarter: 2018Q4

REPORT INFORMATION
  Report Type: Spontaneous
  Country: US (occurrence: US)
  Receive Date: 20180904
  Receipt Date: 20181226
  Transmission Date: 20190204
  Serious: No
  Sender: FDA-Public Use
  Company Number: US-PFIZER INC-2018354489

PATIENT
  Age: 67 Year
  Sex: Female
  Weight: 94 kg

DRUGS (1)
  1. IBRANCE [Suspect]
     Active Substance: PALBOCICLIB
     Indication: BREAST CANCER METASTATIC
     Dosage: 125 MG, CYCLIC (DAYS 1-21 Q28 DAYS; DAILY X 21 DAYS THEN 7 DAYS OFF)
     Route: 048
     Dates: start: 201806

REACTIONS (6)
  - Vision blurred [Unknown]
  - Diarrhoea [Unknown]
  - Therapeutic response unexpected [Unknown]
  - Dry eye [Unknown]
  - Dry mouth [Unknown]
  - Pre-existing condition improved [Unknown]

NARRATIVE: CASE EVENT DATE: 2018
